FAERS Safety Report 15373147 (Version 3)
Quarter: 2018Q4

REPORT INFORMATION
  Report Type: Report from Study
  Country: SI (occurrence: SI)
  Receive Date: 20180912
  Receipt Date: 20181218
  Transmission Date: 20190204
  Serious: Yes (Life-Threatening, Hospitalization, Other)
  Sender: FDA-Public Use
  Company Number: SI-TOLMAR, INC.-2018SI005705

PATIENT

DRUGS (13)
  1. ZOLEDRONIC ACID [Suspect]
     Active Substance: ZOLEDRONIC ACID
     Indication: PROSTATE CANCER METASTATIC
     Dosage: 4 MG, UNK
     Route: 042
  2. INVANZ [Concomitant]
     Active Substance: ERTAPENEM SODIUM
     Dosage: UNK
     Dates: start: 20141207, end: 20141210
  3. ZYTIGA [Suspect]
     Active Substance: ABIRATERONE ACETATE
     Indication: PROSTATE CANCER METASTATIC
     Dosage: 1000 MG, ONCE DAILY
     Route: 048
     Dates: start: 20140922, end: 20160930
  4. MEDROL [Suspect]
     Active Substance: METHYLPREDNISOLONE
     Indication: PROSTATE CANCER METASTATIC
     Dosage: 8 MG, ONCE DAILY
     Route: 048
     Dates: start: 20140922, end: 201412
  5. GRANISETRON [Concomitant]
     Active Substance: GRANISETRON
     Dosage: UNK
     Dates: start: 20141215, end: 20141216
  6. ENZALUTAMIDE [Concomitant]
     Active Substance: ENZALUTAMIDE
  7. ANALGIN                            /06276704/ [Concomitant]
     Dosage: UNK
     Dates: start: 20141205
  8. SUMAMED [Concomitant]
     Active Substance: AZITHROMYCIN ANHYDROUS
     Dosage: UNK
     Dates: start: 20141207, end: 20141209
  9. ZALDIAR [Concomitant]
     Active Substance: ACETAMINOPHEN\TRAMADOL HYDROCHLORIDE
     Dosage: UNK
     Dates: start: 20141212, end: 20141216
  10. ELIGARD [Suspect]
     Active Substance: LEUPROLIDE ACETATE
     Indication: PROSTATE CANCER METASTATIC
     Dosage: 22.5 MG, UNK
     Route: 058
  11. PERFALGAN [Concomitant]
     Active Substance: ACETAMINOPHEN
     Dosage: UNK
     Dates: start: 20141209, end: 20141216
  12. FRAGMIN [Concomitant]
     Active Substance: DALTEPARIN SODIUM
     Dosage: UNK
     Dates: start: 20141205
  13. PANTOPRAZOL                        /01263204/ [Concomitant]
     Active Substance: PANTOPRAZOLE SODIUM
     Dosage: UNK
     Dates: start: 20141211, end: 20141216

REACTIONS (3)
  - Colorectal cancer [Recovering/Resolving]
  - Sepsis [Recovered/Resolved]
  - Haematochezia [Recovered/Resolved]

NARRATIVE: CASE EVENT DATE: 20141202
